FAERS Safety Report 26154237 (Version 1)
Quarter: 2025Q4

REPORT INFORMATION
  Report Type: Spontaneous
  Country: CN (occurrence: CN)
  Receive Date: 20251215
  Receipt Date: 20251215
  Transmission Date: 20260118
  Serious: Yes (Hospitalization)
  Sender: HETERO
  Company Number: CN-AMAROX PHARMA-HET2025CN07527

PATIENT
  Age: 88 Year
  Sex: Male
  Weight: 50 kg

DRUGS (5)
  1. VORICONAZOLE [Interacting]
     Active Substance: VORICONAZOLE
     Indication: Bronchopulmonary aspergillosis
     Dosage: 200 MILLIGRAM, BID ( (LOADING DOSE, 400 MG Q12H)
     Route: 048
  2. VORICONAZOLE [Interacting]
     Active Substance: VORICONAZOLE
     Dosage: 200 MILLIGRAM, BID  (12 HRS)
     Route: 048
  3. VORICONAZOLE [Interacting]
     Active Substance: VORICONAZOLE
     Dosage: 150 MILLIGRAM, BID
     Route: 048
  4. RITONAVIR\SIMNOTRELVIR [Interacting]
     Active Substance: RITONAVIR\SIMNOTRELVIR
     Indication: COVID-19
     Dosage: BID (750 MG/100 MG EVERY 12 H)
     Route: 048
     Dates: end: 20250531
  5. MEROPENEM [Concomitant]
     Active Substance: MEROPENEM
     Indication: Evidence based treatment
     Dosage: 1 GRAM, TID
     Route: 065
     Dates: start: 202505

REACTIONS (2)
  - Drug level increased [Recovering/Resolving]
  - Drug interaction [Unknown]

NARRATIVE: CASE EVENT DATE: 20250529
